FAERS Safety Report 8346538-6 (Version None)
Quarter: 2012Q2

REPORT INFORMATION
  Report Type: 
  Country: None (occurrence: None)
  Receive Date: 20120508
  Receipt Date: 20120508
  Transmission Date: 20120825
  Serious: No
  Sender: FDA-Public Use
  Company Number: None

PATIENT
  Age: 6 Year
  Sex: Male

DRUGS (2)
  1. KAPVAY [Suspect]
     Dosage: 0.1 MG QD FOR ADHD SINCE 3/1/2012 X 6 DAYS
  2. VYVANSE [Concomitant]

REACTIONS (3)
  - HALLUCINATION [None]
  - NIGHTMARE [None]
  - SOMNAMBULISM [None]
